FAERS Safety Report 4597484-5 (Version None)
Quarter: 2005Q1

REPORT INFORMATION
  Report Type: 
  Country: None (occurrence: None)
  Receive Date: 20050303
  Receipt Date: 20041201
  Transmission Date: 20050727
  Serious: Yes (Other)
  Sender: FDA-Public Use
  Company Number: BR-ROCHE-388169

PATIENT
  Age: 17 Year
  Sex: Male
  Weight: 78 kg

DRUGS (1)
  1. ROACUTAN [Suspect]
     Indication: ACNE
     Route: 048
     Dates: start: 20040615, end: 20041127

REACTIONS (3)
  - CEREBELLAR TUMOUR [None]
  - CONVULSION [None]
  - OEDEMA [None]
